FAERS Safety Report 22934936 (Version 2)
Quarter: 2023Q4

REPORT INFORMATION
  Report Type: Spontaneous
  Country: IT (occurrence: IT)
  Receive Date: 20230912
  Receipt Date: 20231002
  Transmission Date: 20240110
  Serious: Yes (Other)
  Sender: FDA-Public Use
  Company Number: IT-SANDOZ-SDZ2023IT015273

PATIENT
  Age: 23 Year
  Sex: Male
  Weight: 62 kg

DRUGS (16)
  1. EPINEPHRINE [Suspect]
     Active Substance: EPINEPHRINE
     Indication: Local anaesthesia
     Dosage: 1.8ML VIALS OF LIDOCAINE 2% WITH EPINEPHRI
     Route: 065
  2. LIDOCAINE [Suspect]
     Active Substance: LIDOCAINE
     Indication: Product used for unknown indication
     Dosage: TWO 1.8ML VIALS OF LIDOCAINE 2% WITH EPINEPHRIN
     Route: 042
  3. REMIFENTANIL [Suspect]
     Active Substance: REMIFENTANIL
     Indication: Anaesthetic premedication
     Dosage: 0.1?G/KG/MIN
     Route: 065
  4. REMIFENTANIL [Suspect]
     Active Substance: REMIFENTANIL
     Dosage: 35 MICROGRAM
     Route: 065
  5. CEFAZOLIN [Suspect]
     Active Substance: CEFAZOLIN
     Indication: Antibiotic prophylaxis
     Dosage: 2 GRAM
     Route: 065
  6. ROCURONIUM [Suspect]
     Active Substance: ROCURONIUM BROMIDE
     Indication: Induction of anaesthesia
     Dosage: 60 MILLIGRAM
     Route: 065
  7. THIOPENTAL [Suspect]
     Active Substance: THIOPENTAL
     Indication: Induction of anaesthesia
     Dosage: 300 MILLIGRAM
     Route: 065
  8. DESFLURANE [Suspect]
     Active Substance: DESFLURANE
     Indication: Maintenance of anaesthesia
     Dosage: 4.9 PERCENT, DESFLURANE PIRAMAL
     Route: 065
  9. DEXAMETHASONE [Suspect]
     Active Substance: DEXAMETHASONE
     Indication: Anaesthetic premedication
     Dosage: 4 MILLIGRAM
     Route: 065
  10. MIDAZOLAM [Suspect]
     Active Substance: MIDAZOLAM
     Indication: Anaesthetic premedication
     Dosage: 1 MILLIGRAM
     Route: 065
  11. SUGAMMADEX [Concomitant]
     Active Substance: SUGAMMADEX
     Indication: Neuromuscular blockade reversal
     Dosage: 200 MILLIGRAM
     Route: 065
  12. RISPERIDONE [Concomitant]
     Active Substance: RISPERIDONE
     Indication: Psychotic disorder
     Dosage: UNK
     Route: 065
  13. DEXTROSE [Concomitant]
     Active Substance: DEXTROSE\DEXTROSE MONOHYDRATE
     Indication: Product used for unknown indication
     Dosage: 100 MILLILITER
     Route: 065
  14. SALINE [Concomitant]
     Active Substance: SODIUM CHLORIDE
     Indication: Product used for unknown indication
     Dosage: 500 MILLILITER
     Route: 065
  15. L-ARGININE MONOHYDROCHLORIDE [Concomitant]
     Indication: Argininosuccinate synthetase deficiency
     Dosage: UNK
     Route: 065
  16. GLYCEROL PHENYLBUTYRATE [Concomitant]
     Active Substance: GLYCEROL PHENYLBUTYRATE
     Indication: Chelation therapy
     Dosage: UNK
     Route: 065

REACTIONS (2)
  - Electrocardiogram abnormal [Recovered/Resolved]
  - Brugada syndrome [Recovered/Resolved]
